FAERS Safety Report 9208360 (Version 2)
Quarter: 2013Q2

REPORT INFORMATION
  Report Type: Spontaneous
  Country: US (occurrence: US)
  Receive Date: 20130404
  Receipt Date: 20130429
  Transmission Date: 20140414
  Serious: Yes (Death)
  Sender: FDA-Public Use
  Company Number: US-AMGEN-USASP2013022470

PATIENT
  Age: 77 Year
  Sex: Female

DRUGS (6)
  1. PROLIA [Suspect]
     Indication: OSTEOPOROSIS POSTMENOPAUSAL
     Dosage: 60 MG, Q6MO
     Route: 058
     Dates: start: 20110411, end: 20120411
  2. OMEPRAZOLE [Concomitant]
     Dosage: 20 MG, QD
     Route: 048
  3. CALCITRIOL [Concomitant]
     Dosage: 0.25 MUG, QD
     Route: 048
  4. LEXAPRO [Concomitant]
     Dosage: 10 MG, QD
     Route: 048
  5. FUROSEMIDE [Concomitant]
     Dosage: 40 MG, QD
     Route: 048
  6. LISINOPRIL [Concomitant]
     Dosage: 5 MG, QD
     Route: 048

REACTIONS (1)
  - Death [Fatal]
